FAERS Safety Report 5167829-6 (Version None)
Quarter: 2006Q4

REPORT INFORMATION
  Report Type: 
  Country: None (occurrence: None)
  Receive Date: 20061208
  Receipt Date: 20061205
  Transmission Date: 20070319
  Serious: Yes (Hospitalization)
  Sender: FDA-Public Use
  Company Number: DK-AVENTIS-200622359GDDC

PATIENT
  Age: 80 Year
  Sex: Male

DRUGS (1)
  1. MINIRIN [Suspect]
     Indication: NOCTURIA
     Route: 045
     Dates: start: 20051001

REACTIONS (2)
  - CONFUSIONAL STATE [None]
  - PALPITATIONS [None]
